FAERS Safety Report 17878505 (Version 1)
Quarter: 2020Q2

REPORT INFORMATION
  Report Type: Spontaneous
  Country: CN (occurrence: CN)
  Receive Date: 20200610
  Receipt Date: 20200610
  Transmission Date: 20200714
  Serious: Yes (Other)
  Sender: FDA-Public Use
  Company Number: CN-ROCHE-2617949

PATIENT
  Age: 74 Year
  Sex: Male

DRUGS (11)
  1. DEXAMETHASONE. [Concomitant]
     Active Substance: DEXAMETHASONE
     Dosage: METHOTREXATE + DEXAMETHASONE
     Route: 065
     Dates: start: 20200114
  2. VINDESINE [Concomitant]
     Active Substance: VINDESINE
     Indication: DIFFUSE LARGE B-CELL LYMPHOMA
     Dosage: D1
     Route: 065
     Dates: start: 20200112
  3. DEXAMETHASONE. [Concomitant]
     Active Substance: DEXAMETHASONE
     Indication: DIFFUSE LARGE B-CELL LYMPHOMA
     Dosage: D1-D5
     Route: 065
     Dates: start: 20200112
  4. CYTARABINE. [Concomitant]
     Active Substance: CYTARABINE
     Indication: DIFFUSE LARGE B-CELL LYMPHOMA
     Dosage: METHOTREXATE + DEXAMETHASONE + CYTARABINE
     Route: 037
     Dates: start: 20200201
  5. DOXORUBICIN [Concomitant]
     Active Substance: DOXORUBICIN
     Indication: DIFFUSE LARGE B-CELL LYMPHOMA
     Dosage: D1
     Route: 065
     Dates: start: 20200112
  6. CYCLOPHOSPHAMIDE. [Concomitant]
     Active Substance: CYCLOPHOSPHAMIDE
     Indication: DIFFUSE LARGE B-CELL LYMPHOMA
     Dosage: D1
     Route: 065
     Dates: start: 20200112
  7. DEXAMETHASONE. [Concomitant]
     Active Substance: DEXAMETHASONE
     Dosage: METHOTREXATE + DEXAMETHASONE + CYTARABINE
     Route: 065
     Dates: start: 20200201
  8. METHOTREXATE. [Concomitant]
     Active Substance: METHOTREXATE
     Dosage: METHOTREXATE + DEXAMETHASONE + CYTARABINE
     Route: 037
     Dates: start: 20200201
  9. PEGYLATED RECOMBINANT HUMAN GRANULOCYTE COLONY STIMULATING FACTOR [Concomitant]
     Route: 065
     Dates: start: 20200201
  10. MABTHERA [Suspect]
     Active Substance: RITUXIMAB
     Indication: DIFFUSE LARGE B-CELL LYMPHOMA
     Dosage: D1
     Route: 065
     Dates: start: 20200112
  11. METHOTREXATE. [Concomitant]
     Active Substance: METHOTREXATE
     Indication: DIFFUSE LARGE B-CELL LYMPHOMA
     Dosage: METHOTREXATE + DEXAMETHASONE
     Route: 037
     Dates: start: 20200114

REACTIONS (3)
  - Herpes virus infection [Unknown]
  - Pneumonia [Recovering/Resolving]
  - CSF protein increased [Unknown]

NARRATIVE: CASE EVENT DATE: 202003
